FAERS Safety Report 5003895-6 (Version None)
Quarter: 2006Q2

REPORT INFORMATION
  Report Type: 
  Country: None (occurrence: None)
  Receive Date: 20060515
  Receipt Date: 20060502
  Transmission Date: 20061013
  Serious: Yes (Hospitalization)
  Sender: FDA-Public Use
  Company Number: GXKR2006FR00936

PATIENT
  Age: 62 Year
  Sex: Female

DRUGS (7)
  1. RIMACTANE [Suspect]
     Indication: SEPSIS
     Dosage: SEE IMAGE
     Route: 042
     Dates: start: 20051104, end: 20060104
  2. CIPROFLOXACIN [Suspect]
     Indication: SEPSIS
     Dosage: 2 DF, ORAL
     Route: 048
     Dates: start: 20051104, end: 20060104
  3. PRIMAXIN [Suspect]
     Dates: end: 20051213
  4. VITAMIN B1 TAB [Concomitant]
  5. INEXIUM (ESOMEPRAZOLE) [Concomitant]
  6. SPECIAFOLDINE (FOLIC ACID) [Concomitant]
  7. FERROUS SULFATE TAB [Concomitant]

REACTIONS (5)
  - CHOLESTASIS [None]
  - CONDITION AGGRAVATED [None]
  - HAEMOLYTIC ANAEMIA [None]
  - INFLAMMATION [None]
  - LIVER DISORDER [None]
